FAERS Safety Report 7968129-9 (Version None)
Quarter: 2011Q4

REPORT INFORMATION
  Report Type: 
  Country: None (occurrence: None)
  Receive Date: 20111209
  Receipt Date: 20111128
  Transmission Date: 20120403
  Serious: Yes (Other)
  Sender: FDA-Public Use
  Company Number: PHHY2011FR105015

PATIENT
  Sex: Male

DRUGS (11)
  1. ASPIRIN [Concomitant]
     Dosage: UNK UKN, UNK
  2. TRANSIPEG [Concomitant]
     Dosage: UNK UKN, UNK
  3. EXELON [Suspect]
     Dosage: 1.5 MG, QD
     Dates: start: 20110217, end: 20110218
  4. EXELON [Suspect]
     Dosage: 3 MG, BID
     Dates: start: 20110207, end: 20110215
  5. EXELON [Suspect]
     Indication: DEMENTIA
     Dosage: 1.5 MG, BID
     Dates: start: 20110106, end: 20110206
  6. EXELON [Suspect]
     Dosage: 1.5 MG, BID
     Dates: start: 20110216
  7. ESOMEPRAZOLE SODIUM [Concomitant]
     Dosage: UNK UKN, UNK
  8. TENORMIN [Concomitant]
     Dosage: UNK UKN, UNK
  9. OXAZEPAM [Concomitant]
     Dosage: UNK UKN, UNK
  10. PERINDOPRIL ERBUMINE [Concomitant]
     Dosage: UNK UKN, UNK
  11. SPECIAFOLDINE [Concomitant]
     Dosage: UNK UKN, UNK

REACTIONS (9)
  - DEPRESSED MOOD [None]
  - CONDITION AGGRAVATED [None]
  - ASTHENIA [None]
  - DEPRESSION [None]
  - GAIT DISTURBANCE [None]
  - AKINESIA [None]
  - EXTRAPYRAMIDAL DISORDER [None]
  - PARKINSONIAN GAIT [None]
  - ANXIETY [None]
